FAERS Safety Report 13969127 (Version 1)
Quarter: 2017Q3

REPORT INFORMATION
  Report Type: Spontaneous
  Country: US (occurrence: US)
  Receive Date: 20170914
  Receipt Date: 20170914
  Transmission Date: 20171128
  Serious: No
  Sender: FDA-Public Use
  Company Number: US-LUNDBECK-DKLU2028970

PATIENT
  Sex: Male

DRUGS (1)
  1. NORTHERA [Suspect]
     Active Substance: DROXIDOPA
     Indication: DEMENTIA WITH LEWY BODIES
     Route: 065
     Dates: start: 201609

REACTIONS (7)
  - Memory impairment [Unknown]
  - Tremor [Unknown]
  - Off label use [Unknown]
  - Confusional state [Unknown]
  - Condition aggravated [Unknown]
  - Dizziness postural [Unknown]
  - Dysphemia [Unknown]
